FAERS Safety Report 16571376 (Version 1)
Quarter: 2019Q3

REPORT INFORMATION
  Report Type: Spontaneous
  Country: US (occurrence: US)
  Receive Date: 20190712
  Receipt Date: 20190712
  Transmission Date: 20191004
  Serious: Yes (Death)
  Sender: FDA-Public Use
  Company Number: None

PATIENT
  Age: 64 Year
  Sex: Female
  Weight: 84.1 kg

DRUGS (1)
  1. OPDIVO [Suspect]
     Active Substance: NIVOLUMAB
     Indication: NON-SMALL CELL LUNG CANCER
     Dosage: ?          OTHER FREQUENCY:EVERY 4 WEEKS;?
     Route: 041
     Dates: start: 20190617, end: 20190710

REACTIONS (5)
  - Diabetic ketoacidosis [None]
  - Septic shock [None]
  - Respiratory failure [None]
  - Hypothermia [None]
  - Loss of consciousness [None]

NARRATIVE: CASE EVENT DATE: 20190710
